FAERS Safety Report 8062206-2 (Version None)
Quarter: 2012Q1

REPORT INFORMATION
  Report Type: 
  Country: None (occurrence: None)
  Receive Date: 20120123
  Receipt Date: 20120112
  Transmission Date: 20120608
  Serious: Yes (Hospitalization)
  Sender: FDA-Public Use
  Company Number: US-GENZYME-POMP-1001962

PATIENT
  Sex: Male
  Weight: 96.5 kg

DRUGS (3)
  1. LUMIZYME [Suspect]
     Indication: GLYCOGEN STORAGE DISEASE TYPE II
     Dosage: 19.7 MG/KG, Q2W
     Route: 042
  2. BENADRYL [Concomitant]
     Indication: PREMEDICATION
     Dosage: UNK UNK, UNK
     Route: 065
  3. ACETAMINOPHEN [Concomitant]
     Indication: PREMEDICATION
     Dosage: UNK UNK, UNK
     Route: 065

REACTIONS (1)
  - INFECTION [None]
